FAERS Safety Report 11676611 (Version 5)
Quarter: 2016Q1

REPORT INFORMATION
  Report Type: Spontaneous
  Country: US (occurrence: US)
  Receive Date: 20151028
  Receipt Date: 20160316
  Transmission Date: 20160525
  Serious: Yes (Hospitalization, Other)
  Sender: FDA-Public Use
  Company Number: US-PFIZER INC-2015309073

PATIENT
  Age: 55 Year
  Sex: Male
  Weight: 75 kg

DRUGS (1)
  1. SUTENT [Suspect]
     Active Substance: SUNITINIB MALATE
     Indication: CARCINOID TUMOUR
     Dosage: 37.5 MG ONCE DAILY, CYCLIC (DAYS 1-28 Q 28 DAYS)
     Route: 048
     Dates: start: 20150811

REACTIONS (7)
  - Vomiting [Unknown]
  - Blood pressure increased [Unknown]
  - Abdominal pain [Unknown]
  - Insomnia [Unknown]
  - Cholecystitis [Not Recovered/Not Resolved]
  - Nausea [Unknown]
  - Malaise [Unknown]

NARRATIVE: CASE EVENT DATE: 2015
